FAERS Safety Report 20911307 (Version 1)
Quarter: 2022Q2

REPORT INFORMATION
  Report Type: Report from Study
  Country: US (occurrence: US)
  Receive Date: 20220603
  Receipt Date: 20220603
  Transmission Date: 20220720
  Serious: Yes (Other)
  Sender: FDA-Public Use
  Company Number: US-MYLANLABS-2022M1041070

PATIENT
  Age: 54 Year
  Sex: Female

DRUGS (2)
  1. BUPROPION [Suspect]
     Active Substance: BUPROPION
     Indication: Product used for unknown indication
     Dosage: 600 MILLIGRAM, TOTAL, EXTENDED RELEASE; RECEIVED 18H PRIOR
     Route: 048
  2. BUPROPION [Suspect]
     Active Substance: BUPROPION
     Dosage: 450 MILLIGRAM, EXTENDED RELEASE
     Route: 048

REACTIONS (2)
  - Seizure [Unknown]
  - Accidental overdose [Unknown]
